FAERS Safety Report 8439632-2 (Version None)
Quarter: 2012Q2

REPORT INFORMATION
  Report Type: 
  Country: None (occurrence: None)
  Receive Date: 20120615
  Receipt Date: 20120612
  Transmission Date: 20120825
  Serious: Yes (Death)
  Sender: FDA-Public Use
  Company Number: US-PFIZER INC-2012116601

PATIENT
  Sex: Male

DRUGS (2)
  1. VFEND [Suspect]
  2. VFEND [Suspect]
     Indication: MYELODYSPLASTIC SYNDROME
     Dosage: 300 MG, 2X/DAY
     Dates: start: 20120411

REACTIONS (1)
  - DEATH [None]
